FAERS Safety Report 5352910-9 (Version None)
Quarter: 2007Q2

REPORT INFORMATION
  Report Type: 
  Country: None (occurrence: None)
  Receive Date: 20070611
  Receipt Date: 20070601
  Transmission Date: 20071010
  Serious: Yes (Other)
  Sender: FDA-Public Use
  Company Number: US-PFIZER INC-2003163228US

PATIENT
  Sex: Female
  Weight: 73.5 kg

DRUGS (6)
  1. EXEMESTANE [Suspect]
     Indication: BREAST CANCER
     Route: 048
     Dates: start: 20030218, end: 20030605
  2. CENTRUM SILVER [Concomitant]
     Dosage: FREQ:QD
  3. ASCORBIC ACID [Concomitant]
     Dosage: FREQ:QD
  4. OSCAL [Concomitant]
     Dosage: FREQ:QD
  5. EFFEXOR [Concomitant]
     Indication: ANXIETY
     Route: 048
  6. METHOCARBAMOL [Concomitant]
     Route: 048

REACTIONS (1)
  - TRANSIENT ISCHAEMIC ATTACK [None]
